FAERS Safety Report 8880073 (Version 1)
Quarter: 2012Q4

REPORT INFORMATION
  Report Type: 
  Country: US (occurrence: US)
  Receive Date: 20121031
  Receipt Date: 20121031
  Transmission Date: 20130627
  Serious: Yes (Hospitalization)
  Sender: FDA-Public Use
  Company Number: US-009507513-1210USA010377

PATIENT
  Age: 54 Year
  Sex: Female

DRUGS (9)
  1. VICTRELIS [Suspect]
     Indication: HEPATITIS C
     Dosage: 4 DF, tid ,(4 - 200 mg capsules) three times a day (every 7-9 hours) start on week 5
     Route: 048
  2. RIBAVIRIN [Suspect]
     Dosage: 200 mg, UNK
  3. PEG-INTRON [Suspect]
     Dosage: 120 Microgram, UNK
  4. ALBUTEROL [Concomitant]
     Dosage: UNK
     Route: 055
  5. ADVAIR [Concomitant]
     Dosage: 500/50 ,UNK
  6. OXYCONTIN [Concomitant]
     Dosage: 40 mg, UNK
  7. ZOLOFT [Concomitant]
     Dosage: 100 mg, UNK
  8. SYNTHROID [Concomitant]
     Dosage: 25 Microgram, UNK
  9. VITAMIN B COMPLEX [Concomitant]

REACTIONS (1)
  - Malaise [Recovered/Resolved]
